FAERS Safety Report 9730163 (Version 1)
Quarter: 2013Q4

REPORT INFORMATION
  Report Type: Spontaneous
  Country: US (occurrence: US)
  Receive Date: 20131204
  Receipt Date: 20131204
  Transmission Date: 20140711
  Serious: No
  Sender: FDA-Public Use
  Company Number: US-009507513-1312USA001877

PATIENT
  Age: 28 Year
  Sex: Female

DRUGS (3)
  1. CLARITIN-D-12 [Suspect]
     Indication: NASAL CONGESTION
     Dosage: UNK, UNKNOWN
     Route: 048
  2. CLARITIN-D-12 [Suspect]
     Indication: NASOPHARYNGITIS
  3. PENICILLIN (UNSPECIFIED) [Suspect]
     Indication: PHARYNGITIS STREPTOCOCCAL

REACTIONS (3)
  - Insomnia [Unknown]
  - Exposure during breast feeding [Unknown]
  - Drug effect decreased [Unknown]
